FAERS Safety Report 12904325 (Version 1)
Quarter: 2016Q4

REPORT INFORMATION
  Report Type: Spontaneous
  Country: US (occurrence: US)
  Receive Date: 20161102
  Receipt Date: 20161102
  Transmission Date: 20170207
  Serious: Yes (Other)
  Sender: FDA-Public Use
  Company Number: US-CELGENEUS-USA-2016108584

PATIENT
  Sex: Female

DRUGS (4)
  1. THALOMID [Suspect]
     Active Substance: THALIDOMIDE
     Indication: PLASMA CELL MYELOMA
     Route: 048
     Dates: start: 200304
  2. THALOMID [Suspect]
     Active Substance: THALIDOMIDE
     Dosage: 100 - 150MG
     Route: 048
     Dates: start: 200703
  3. THALOMID [Suspect]
     Active Substance: THALIDOMIDE
     Dosage: 50 - 100MG
     Route: 048
     Dates: start: 200607
  4. THALOMID [Suspect]
     Active Substance: THALIDOMIDE
     Route: 048
     Dates: start: 201111

REACTIONS (2)
  - Drug intolerance [Unknown]
  - Dementia [Unknown]
